FAERS Safety Report 11618872 (Version 1)
Quarter: 2015Q4

REPORT INFORMATION
  Report Type: Spontaneous
  Country: DE (occurrence: DE)
  Receive Date: 20151012
  Receipt Date: 20151012
  Transmission Date: 20160304
  Serious: Yes (Other)
  Sender: FDA-Public Use
  Company Number: DE-MYLANLABS-2015M1034255

PATIENT

DRUGS (1)
  1. ZOLPIDEM [Suspect]
     Active Substance: ZOLPIDEM\ZOLPIDEM TARTRATE
     Indication: SLEEP DISORDER
     Route: 065

REACTIONS (6)
  - Somnambulism [Recovered/Resolved]
  - Toxicity to various agents [Recovering/Resolving]
  - Road traffic accident [Recovered/Resolved]
  - Accidental overdose [Recovering/Resolving]
  - Abnormal sleep-related event [Recovered/Resolved]
  - Anterograde amnesia [Unknown]
